FAERS Safety Report 7376351-8 (Version None)
Quarter: 2011Q1

REPORT INFORMATION
  Report Type: 
  Country: None (occurrence: None)
  Receive Date: 20110325
  Receipt Date: 20110317
  Transmission Date: 20110831
  Serious: Yes (Hospitalization)
  Sender: FDA-Public Use
  Company Number: US-ABBOTT-10P-163-0671690-00

PATIENT
  Sex: Male
  Weight: 72 kg

DRUGS (10)
  1. BEELITH [Concomitant]
     Indication: MINERAL SUPPLEMENTATION
     Dates: start: 20090122
  2. POTASSIUM CITRATE [Concomitant]
     Indication: NEPHROLITHIASIS
     Dates: start: 20090101
  3. LISINOPRIL [Concomitant]
     Indication: HYPERTENSION
  4. VITAMIN D [Concomitant]
     Indication: VITAMIN SUPPLEMENTATION
     Dates: start: 20090122
  5. HUMIRA [Suspect]
     Indication: CROHN'S DISEASE
     Route: 058
     Dates: start: 20090305
  6. CALCIUM WITH VITAMIN D [Concomitant]
     Indication: MINERAL SUPPLEMENTATION
     Dates: start: 20090122
  7. METHOTREXATE [Concomitant]
     Indication: CROHN'S DISEASE
     Dosage: 2.5 MG X 6 TABLETS
     Dates: start: 20070925
  8. FOLIC ACID [Concomitant]
     Indication: VITAMIN SUPPLEMENTATION
     Dates: start: 20070925
  9. CHOLESTYRAMINE [Concomitant]
     Indication: DIARRHOEA
     Dates: start: 20070925
  10. ALLOPURINOL [Concomitant]
     Indication: GOUT
     Dates: start: 20070101

REACTIONS (3)
  - FISTULA [None]
  - GASTROINTESTINAL TRACT ADENOMA [None]
  - ILEITIS [None]
